FAERS Safety Report 9564407 (Version 1)
Quarter: 2013Q3

REPORT INFORMATION
  Report Type: Spontaneous
  Country: FR (occurrence: FR)
  Receive Date: 20130930
  Receipt Date: 20130930
  Transmission Date: 20140515
  Serious: No
  Sender: FDA-Public Use
  Company Number: FR-009507513-1309FRA005627

PATIENT
  Age: 83 Year
  Sex: Female

DRUGS (1)
  1. DIPROSONE [Suspect]
     Dosage: 1 GTT, ONCE
     Route: 047
     Dates: start: 20130622

REACTIONS (4)
  - Eye pain [Unknown]
  - Pruritus [Unknown]
  - Incorrect route of drug administration [Recovered/Resolved]
  - Medication error [Recovered/Resolved]
